FAERS Safety Report 8318891-0 (Version None)
Quarter: 2012Q2

REPORT INFORMATION
  Report Type: 
  Country: None (occurrence: None)
  Receive Date: 20120427
  Receipt Date: 20120417
  Transmission Date: 20120825
  Serious: Yes (Other)
  Sender: FDA-Public Use
  Company Number: JP-PFIZER INC-2012077586

PATIENT
  Age: 85 Year
  Sex: Female

DRUGS (13)
  1. ASPIRIN [Concomitant]
     Dosage: 100 MG, 1X/DAY
     Route: 048
  2. UNASYN [Suspect]
     Indication: POST PROCEDURAL INFECTION
     Dosage: 3 G, 1X/DAY
     Route: 041
     Dates: start: 20120313, end: 20120314
  3. BETAMETHASONE [Concomitant]
     Dosage: UNK
     Route: 047
  4. LEVOTHYROXINE SODIUM [Concomitant]
     Dosage: 87.5 UG, 1X/DAY
     Route: 048
  5. DICLOD [Concomitant]
     Dosage: UNK
     Route: 047
  6. MUCOSTA [Concomitant]
     Dosage: 200 MG, 1X/DAY
     Route: 048
  7. PROCYLIN [Concomitant]
     Dosage: 20 UG, 2X/DAY
     Route: 048
  8. LASIX [Concomitant]
     Dosage: 30 MG, 1X/DAY
     Route: 048
  9. MIGLITOL [Concomitant]
     Dosage: 200 MG/DAY IN 3 DIVIDED DOSES
     Route: 048
  10. UNASYN [Suspect]
     Dosage: 3 G, 1X/DAY
     Route: 041
     Dates: start: 20120316
  11. NATEGLINIDE [Concomitant]
     Dosage: 270 MG/DAY, NUMBER OF DOSES A DAY UNKNOWN
     Route: 048
  12. GATIFLOXACIN [Concomitant]
     Dosage: UNK
     Route: 047
  13. NORVASC [Concomitant]
     Dosage: 5 MG, 1X/DAY
     Route: 048

REACTIONS (3)
  - TOXIC SKIN ERUPTION [None]
  - DRUG ERUPTION [None]
  - ECZEMA [None]
